FAERS Safety Report 16218083 (Version 9)
Quarter: 2021Q4

REPORT INFORMATION
  Report Type: Report from Study
  Country: GB (occurrence: GB)
  Receive Date: 20190419
  Receipt Date: 20211108
  Transmission Date: 20220303
  Serious: Yes (Hospitalization)
  Sender: FDA-Public Use
  Company Number: None

PATIENT
  Age: 78 Year
  Sex: Female
  Weight: 95 kg

DRUGS (1)
  1. KISQALI [Suspect]
     Active Substance: RIBOCICLIB
     Indication: Breast cancer metastatic
     Dosage: 600 MG
     Route: 048
     Dates: start: 20190314, end: 20190404

REACTIONS (6)
  - Oral candidiasis [Recovered/Resolved]
  - Acute kidney injury [Recovered/Resolved]
  - Cellulitis [Recovering/Resolving]
  - Pneumonia [Recovered/Resolved with Sequelae]
  - Dyspnoea [Recovering/Resolving]
  - Peripheral swelling [Recovering/Resolving]

NARRATIVE: CASE EVENT DATE: 20190327
